FAERS Safety Report 4909721-5 (Version None)
Quarter: 2006Q1

REPORT INFORMATION
  Report Type: 
  Country: None (occurrence: None)
  Receive Date: 20060208
  Receipt Date: 20060126
  Transmission Date: 20060701
  Serious: Yes (Hospitalization, Other)
  Sender: FDA-Public Use
  Company Number: 2006013913

PATIENT
  Age: 39 Year
  Sex: Male
  Weight: 81.6475 kg

DRUGS (2)
  1. BEXTRA [Suspect]
     Indication: ILL-DEFINED DISORDER
     Dosage: (10 MG, PRN INTERVAL: 2 TO 3 DAILY)
  2. BEXTRA [Suspect]
     Indication: INFLAMMATION
     Dosage: (10 MG, PRN INTERVAL: 2 TO 3 DAILY)

REACTIONS (5)
  - DRUG TOXICITY [None]
  - POST PROCEDURAL COMPLICATION [None]
  - SCAR [None]
  - SKIN ULCER [None]
  - SPINAL OPERATION [None]
